FAERS Safety Report 4406830-4 (Version None)
Quarter: 2004Q3

REPORT INFORMATION
  Report Type: 
  Country: None (occurrence: None)
  Receive Date: 20040723
  Receipt Date: 20040720
  Transmission Date: 20050211
  Serious: Yes (Hospitalization)
  Sender: FDA-Public Use
  Company Number: FR-MERCK-0407FRA00049

PATIENT
  Age: 69 Year
  Sex: Male
  Weight: 68 kg

DRUGS (4)
  1. [THERAPY UNSPECIFIED] [Suspect]
     Indication: ARTHRALGIA
     Route: 061
     Dates: start: 20040515, end: 20040525
  2. ACETAMINOPHEN AND PROPOXYPHENE HYDROCHLORIDE [Suspect]
     Indication: PYREXIA
     Route: 048
     Dates: start: 20040515, end: 20040525
  3. LANSOPRAZOLE [Suspect]
     Route: 048
     Dates: start: 20040515, end: 20040525
  4. VIOXX [Suspect]
     Indication: ARTHRALGIA
     Route: 048
     Dates: start: 20040515, end: 20040525

REACTIONS (4)
  - NAUSEA [None]
  - PCO2 DECREASED [None]
  - RENAL FAILURE ACUTE [None]
  - URTICARIA [None]
